FAERS Safety Report 21566409 (Version 5)
Quarter: 2023Q4

REPORT INFORMATION
  Report Type: Report from Study
  Country: US (occurrence: US)
  Receive Date: 20221108
  Receipt Date: 20231130
  Transmission Date: 20240109
  Serious: Yes (Other)
  Sender: FDA-Public Use
  Company Number: US-ABBVIE-4152283

PATIENT
  Sex: Female

DRUGS (6)
  1. HUMIRA [Suspect]
     Active Substance: ADALIMUMAB
     Indication: Psoriasis
     Route: 058
  2. HUMIRA [Suspect]
     Active Substance: ADALIMUMAB
     Indication: Psoriatic arthropathy
     Route: 058
  3. PFIZER-BIONTECH COVID-19 VACCINE [Concomitant]
     Active Substance: TOZINAMERAN
     Indication: COVID-19 immunisation
     Dosage: TIME INTERVAL: TOTAL: ONCE IN ONCE
     Route: 030
     Dates: start: 20210320, end: 20210320
  4. PFIZER-BIONTECH COVID-19 VACCINE [Concomitant]
     Active Substance: TOZINAMERAN
     Indication: COVID-19 immunisation
     Dosage: TIME INTERVAL: TOTAL: ONCE IN ONCE
     Route: 030
     Dates: start: 20210220, end: 20210220
  5. PFIZER-BIONTECH COVID-19 VACCINE [Concomitant]
     Active Substance: TOZINAMERAN
     Indication: COVID-19 immunisation
     Dosage: TIME INTERVAL: TOTAL: BOOSTER DOSE, ONCE IN ONCE
     Route: 030
     Dates: start: 20211223, end: 20211223
  6. CORTISONE [Suspect]
     Active Substance: CORTISONE
     Indication: Product used for unknown indication
     Dosage: SHOT
     Route: 065

REACTIONS (13)
  - Deafness [Recovering/Resolving]
  - Pain in extremity [Unknown]
  - Thrombosis [Recovering/Resolving]
  - Nervousness [Unknown]
  - Mood altered [Unknown]
  - Rhinorrhoea [Unknown]
  - Headache [Unknown]
  - Sleep disorder [Unknown]
  - Pruritus [Unknown]
  - Arthralgia [Not Recovered/Not Resolved]
  - Fall [Unknown]
  - Gait inability [Unknown]
  - Sciatica [Unknown]
